FAERS Safety Report 16842729 (Version 14)
Quarter: 2021Q2

REPORT INFORMATION
  Report Type: Spontaneous
  Country: CA (occurrence: CA)
  Receive Date: 20190924
  Receipt Date: 20210423
  Transmission Date: 20210716
  Serious: Yes (Hospitalization, Disabling, Other)
  Sender: FDA-Public Use
  Company Number: CA-ORION CORPORATION ORION PHARMA-TREX2019-3543

PATIENT
  Age: 41 Year
  Sex: Female
  Weight: 90 kg

DRUGS (159)
  1. METHOTREXATE (TRADE NAME UNKNOWN) [Suspect]
     Active Substance: METHOTREXATE
     Route: 065
  2. METHOTREXATE (TRADE NAME UNKNOWN) [Suspect]
     Active Substance: METHOTREXATE
     Dosage: 4 TIMES PER WEEK
     Route: 065
  3. ETANERCEPT [Suspect]
     Active Substance: ETANERCEPT
     Route: 065
  4. SULFASALAZINE. [Suspect]
     Active Substance: SULFASALAZINE
     Indication: PSORIATIC ARTHROPATHY
     Route: 065
  5. ENBREL [Suspect]
     Active Substance: ETANERCEPT
     Indication: PSORIATIC ARTHROPATHY
     Route: 058
  6. ENBREL [Suspect]
     Active Substance: ETANERCEPT
     Indication: PSORIASIS
     Route: 065
  7. APO?CYCLOSPORINE [Suspect]
     Active Substance: CYCLOSPORINE
     Route: 065
  8. GOLIMUMAB [Suspect]
     Active Substance: GOLIMUMAB
     Indication: PSORIATIC ARTHROPATHY
     Route: 058
  9. OTEZLA [Suspect]
     Active Substance: APREMILAST
     Indication: PSORIATIC ARTHROPATHY
     Route: 048
  10. CICLOSPORIN [Suspect]
     Active Substance: CYCLOSPORINE
     Route: 065
  11. SULFAMETHOXAZOLE [Suspect]
     Active Substance: SULFAMETHOXAZOLE
     Indication: PRODUCT USED FOR UNKNOWN INDICATION
     Route: 048
  12. ALENDRONATE SODIUM. [Suspect]
     Active Substance: ALENDRONATE SODIUM
     Indication: PRODUCT USED FOR UNKNOWN INDICATION
     Dosage: 4 EVERY 1 WEEK
     Route: 065
  13. RITUXAN [Suspect]
     Active Substance: RITUXIMAB
     Route: 042
  14. DIPHENHYDRAMINE. [Suspect]
     Active Substance: DIPHENHYDRAMINE
     Indication: PRODUCT USED FOR UNKNOWN INDICATION
     Route: 065
  15. MOGADON [Concomitant]
     Active Substance: NITRAZEPAM
     Route: 065
  16. FOLIC ACID. [Concomitant]
     Active Substance: FOLIC ACID
     Route: 065
  17. OXYCODONE HYDROCHLORIDE. [Concomitant]
     Active Substance: OXYCODONE HYDROCHLORIDE
     Route: 065
  18. PREDNISONE. [Concomitant]
     Active Substance: PREDNISONE
     Route: 065
  19. RISEDRONATE SODIUM. [Concomitant]
     Active Substance: RISEDRONATE SODIUM
     Route: 048
  20. METHOTREXATE (TRADE NAME UNKNOWN) [Suspect]
     Active Substance: METHOTREXATE
     Route: 065
  21. ETANERCEPT [Suspect]
     Active Substance: ETANERCEPT
     Indication: PSORIASIS
     Route: 065
  22. IBUPROFEN. [Suspect]
     Active Substance: IBUPROFEN
     Route: 048
  23. IBUPROFEN. [Suspect]
     Active Substance: IBUPROFEN
     Route: 048
  24. ENBREL [Suspect]
     Active Substance: ETANERCEPT
     Route: 065
  25. APO?LEFLUNOMIDE [Suspect]
     Active Substance: LEFLUNOMIDE
     Indication: PRODUCT USED FOR UNKNOWN INDICATION
     Route: 048
  26. APREMILAST [Suspect]
     Active Substance: APREMILAST
     Indication: RHEUMATOID ARTHRITIS
     Route: 065
  27. APREMILAST [Suspect]
     Active Substance: APREMILAST
     Indication: PSORIASIS
     Route: 065
  28. CYCLOSPORIN A [Suspect]
     Active Substance: CYCLOSPORINE
     Route: 065
  29. ORENCIA [Suspect]
     Active Substance: ABATACEPT
     Route: 065
  30. REMICADE [Suspect]
     Active Substance: INFLIXIMAB
     Indication: PRODUCT USED FOR UNKNOWN INDICATION
     Route: 042
  31. CELEBREX [Suspect]
     Active Substance: CELECOXIB
     Indication: ADENOMATOUS POLYPOSIS COLI
     Route: 048
  32. ANOLAMINE HYDROCHLORIDE [Suspect]
     Active Substance: PHENYLPROPANOLAMINE HYDROCHLORIDE
     Indication: PRODUCT USED FOR UNKNOWN INDICATION
     Route: 065
  33. ACTEMRA [Suspect]
     Active Substance: TOCILIZUMAB
     Indication: PRODUCT USED FOR UNKNOWN INDICATION
     Route: 065
  34. ULORIC [Concomitant]
     Active Substance: FEBUXOSTAT
     Route: 048
  35. NITRAZEPAM [Concomitant]
     Active Substance: NITRAZEPAM
     Route: 048
  36. DEXILANT [Concomitant]
     Active Substance: DEXLANSOPRAZOLE
     Route: 065
  37. FEBUXOSTAT. [Concomitant]
     Active Substance: FEBUXOSTAT
     Route: 065
  38. OXYCODONE HYDROCHLORIDE. [Concomitant]
     Active Substance: OXYCODONE HYDROCHLORIDE
     Route: 065
  39. CANNABIS SATIVA [Concomitant]
     Active Substance: CANNABIS SATIVA FLOWERING TOP
     Route: 065
  40. ACTONEL [Concomitant]
     Active Substance: RISEDRONATE SODIUM
     Route: 048
  41. METHOTREXATE (TRADE NAME UNKNOWN) [Suspect]
     Active Substance: METHOTREXATE
     Dosage: 4 TIMES PER WEEK
     Route: 065
  42. METHOTREXATE (TRADE NAME UNKNOWN) [Suspect]
     Active Substance: METHOTREXATE
     Route: 065
  43. METHOTREXATE (TRADE NAME UNKNOWN) [Suspect]
     Active Substance: METHOTREXATE
     Route: 048
  44. ETANERCEPT [Suspect]
     Active Substance: ETANERCEPT
     Indication: PSORIATIC ARTHROPATHY
     Route: 065
  45. ETANERCEPT [Suspect]
     Active Substance: ETANERCEPT
     Dosage: 2 TIMES
     Route: 058
  46. SULFASALAZINE. [Suspect]
     Active Substance: SULFASALAZINE
     Indication: RHEUMATOID ARTHRITIS
     Route: 065
  47. APO?CYCLOSPORINE [Suspect]
     Active Substance: CYCLOSPORINE
     Indication: PRODUCT USED FOR UNKNOWN INDICATION
     Route: 048
  48. ADALIMUMAB [Suspect]
     Active Substance: ADALIMUMAB
     Indication: PSORIATIC ARTHROPATHY
     Route: 058
  49. STELARA [Suspect]
     Active Substance: USTEKINUMAB
     Indication: PSORIATIC ARTHROPATHY
     Route: 058
  50. USTEKINUMAB [Suspect]
     Active Substance: USTEKINUMAB
     Route: 065
  51. HUMIRA [Suspect]
     Active Substance: ADALIMUMAB
     Indication: PSORIATIC ARTHROPATHY
     Dosage: 40 (UNITS UNKNOWN)
     Route: 058
  52. SIMPONI [Suspect]
     Active Substance: GOLIMUMAB
     Indication: PSORIATIC ARTHROPATHY
     Route: 058
  53. TOCILIZUMAB. [Suspect]
     Active Substance: TOCILIZUMAB
     Indication: RHEUMATOID ARTHRITIS
     Route: 065
  54. RITUXIMAB. [Suspect]
     Active Substance: RITUXIMAB
     Indication: PSORIATIC ARTHROPATHY
     Route: 065
  55. PLAQUENIL [Suspect]
     Active Substance: HYDROXYCHLOROQUINE SULFATE
     Indication: PRODUCT USED FOR UNKNOWN INDICATION
     Route: 065
  56. OXYNEO [Concomitant]
     Active Substance: OXYCODONE
     Route: 065
  57. ULORIC [Concomitant]
     Active Substance: FEBUXOSTAT
     Route: 065
  58. NITRAZEPAM [Concomitant]
     Active Substance: NITRAZEPAM
     Route: 065
  59. OXYCODONE HYDROCHLORIDE. [Concomitant]
     Active Substance: OXYCODONE HYDROCHLORIDE
     Route: 065
  60. METHOTREXATE (TRADE NAME UNKNOWN) [Suspect]
     Active Substance: METHOTREXATE
     Route: 065
  61. METHOTREXATE (TRADE NAME UNKNOWN) [Suspect]
     Active Substance: METHOTREXATE
     Route: 065
  62. METHOTREXATE (TRADE NAME UNKNOWN) [Suspect]
     Active Substance: METHOTREXATE
     Route: 058
  63. METHOTREXATE (TRADE NAME UNKNOWN) [Suspect]
     Active Substance: METHOTREXATE
     Dosage: 4 TIMES PER WEEK
     Route: 058
  64. METHOTREXATE (TRADE NAME UNKNOWN) [Suspect]
     Active Substance: METHOTREXATE
     Route: 065
  65. ETANERCEPT [Suspect]
     Active Substance: ETANERCEPT
     Route: 065
  66. ETANERCEPT [Suspect]
     Active Substance: ETANERCEPT
     Route: 058
  67. IBUPROFEN. [Suspect]
     Active Substance: IBUPROFEN
     Indication: PRODUCT USED FOR UNKNOWN INDICATION
     Dosage: EVERY 3?4 HOURS REGULARLY
     Route: 048
  68. ENBREL [Suspect]
     Active Substance: ETANERCEPT
     Indication: RHEUMATOID ARTHRITIS
     Dosage: 2 TIMES/WK
     Route: 065
  69. ENBREL [Suspect]
     Active Substance: ETANERCEPT
     Route: 065
  70. HUMIRA [Suspect]
     Active Substance: ADALIMUMAB
     Route: 058
  71. SIMPONI [Suspect]
     Active Substance: GOLIMUMAB
     Route: 058
  72. HYDROXYCHLOROQUINE [Suspect]
     Active Substance: HYDROXYCHLOROQUINE
     Indication: RHEUMATOID ARTHRITIS
     Route: 065
  73. HYDROXYCHLOROQUINE [Suspect]
     Active Substance: HYDROXYCHLOROQUINE
     Route: 065
  74. ULORIC [Concomitant]
     Active Substance: FEBUXOSTAT
     Route: 065
  75. COLCHICINE. [Concomitant]
     Active Substance: COLCHICINE
     Route: 048
  76. NAPROXEN. [Concomitant]
     Active Substance: NAPROXEN
     Route: 065
  77. METHOTREXATE (TRADE NAME UNKNOWN) [Suspect]
     Active Substance: METHOTREXATE
     Dosage: 4 TIMES PER WEEK
     Route: 065
  78. ETANERCEPT [Suspect]
     Active Substance: ETANERCEPT
     Indication: RHEUMATOID ARTHRITIS
     Route: 058
  79. IBUPROFEN. [Suspect]
     Active Substance: IBUPROFEN
     Route: 048
  80. IBUPROFEN. [Suspect]
     Active Substance: IBUPROFEN
     Route: 048
  81. HUMIRA [Suspect]
     Active Substance: ADALIMUMAB
     Indication: RHEUMATOID ARTHRITIS
     Dosage: CYCLICAL
     Route: 058
  82. OTEZLA [Suspect]
     Active Substance: APREMILAST
     Indication: PSORIASIS
     Route: 065
  83. CICLOSPORIN [Suspect]
     Active Substance: CYCLOSPORINE
     Indication: PSORIATIC ARTHROPATHY
     Route: 048
  84. CICLOSPORIN [Suspect]
     Active Substance: CYCLOSPORINE
     Route: 065
  85. MOTRIN [Suspect]
     Active Substance: IBUPROFEN
     Route: 048
  86. CODEINE [Suspect]
     Active Substance: CODEINE
     Indication: PRODUCT USED FOR UNKNOWN INDICATION
     Route: 065
  87. REMICADE [Suspect]
     Active Substance: INFLIXIMAB
     Route: 041
  88. COSENTYX [Suspect]
     Active Substance: SECUKINUMAB
     Indication: PSORIATIC ARTHROPATHY
     Route: 065
  89. ACETAMINOPHEN. [Suspect]
     Active Substance: ACETAMINOPHEN
     Indication: PRODUCT USED FOR UNKNOWN INDICATION
     Route: 065
  90. ULORIC [Concomitant]
     Active Substance: FEBUXOSTAT
     Dosage: (FREQ: 2 DAY; INTERVAL: 1)
     Route: 048
  91. ULORIC [Concomitant]
     Active Substance: FEBUXOSTAT
     Route: 048
  92. COLCHICINE. [Concomitant]
     Active Substance: COLCHICINE
     Route: 048
  93. COLCHICINE. [Concomitant]
     Active Substance: COLCHICINE
     Route: 065
  94. DEXILANT [Concomitant]
     Active Substance: DEXLANSOPRAZOLE
     Route: 048
  95. METHOTREXATE (TRADE NAME UNKNOWN) [Suspect]
     Active Substance: METHOTREXATE
     Indication: RHEUMATOID ARTHRITIS
     Route: 048
  96. METHOTREXATE (TRADE NAME UNKNOWN) [Suspect]
     Active Substance: METHOTREXATE
     Route: 065
  97. METHOTREXATE (TRADE NAME UNKNOWN) [Suspect]
     Active Substance: METHOTREXATE
     Dosage: 4 TIMES PER WEEK
     Route: 058
  98. METHOTREXATE (TRADE NAME UNKNOWN) [Suspect]
     Active Substance: METHOTREXATE
     Dosage: 12.5MG, 4 TIMES/WK, .1096MG, 4 IN 1 YEARS, .1315MG, 4 IN 1 YEARS, 10 MG, 12MG, 17.5MG, 4 TIMES/WK, 1
     Route: 065
  99. ETANERCEPT [Suspect]
     Active Substance: ETANERCEPT
     Route: 058
  100. SULFASALAZINE. [Suspect]
     Active Substance: SULFASALAZINE
     Route: 048
  101. INFLIXIMAB HOSPIRA [Suspect]
     Active Substance: INFLIXIMAB
     Indication: PSORIATIC ARTHROPATHY
     Route: 042
  102. INFLIXIMAB HOSPIRA [Suspect]
     Active Substance: INFLIXIMAB
     Route: 048
  103. ABATACEPT [Suspect]
     Active Substance: ABATACEPT
     Indication: PSORIATIC ARTHROPATHY
     Route: 065
  104. STELARA [Suspect]
     Active Substance: USTEKINUMAB
     Route: 058
  105. USTEKINUMAB [Suspect]
     Active Substance: USTEKINUMAB
     Indication: PSORIATIC ARTHROPATHY
     Route: 058
  106. CERTOLIZUMAB PEGOL [Suspect]
     Active Substance: CERTOLIZUMAB PEGOL
     Indication: PSORIATIC ARTHROPATHY
     Route: 058
  107. CERTOLIZUMAB PEGOL [Suspect]
     Active Substance: CERTOLIZUMAB PEGOL
     Route: 065
  108. OTEZLA [Suspect]
     Active Substance: APREMILAST
     Indication: RHEUMATOID ARTHRITIS
     Route: 048
  109. MOTRIN [Suspect]
     Active Substance: IBUPROFEN
     Indication: PRODUCT USED FOR UNKNOWN INDICATION
     Dosage: EVERY 3?4 HOURS REGULARLY
     Route: 048
  110. ORENCIA [Suspect]
     Active Substance: ABATACEPT
     Indication: PSORIATIC ARTHROPATHY
     Route: 058
  111. RITUXAN [Suspect]
     Active Substance: RITUXIMAB
     Indication: RHEUMATOID ARTHRITIS
     Route: 042
  112. BENADRYL [Suspect]
     Active Substance: DIPHENHYDRAMINE HYDROCHLORIDE
     Indication: PRODUCT USED FOR UNKNOWN INDICATION
     Route: 065
  113. GRAVOL [Concomitant]
     Active Substance: DIMENHYDRINATE
     Route: 065
  114. FEBUXOSTAT. [Concomitant]
     Active Substance: FEBUXOSTAT
     Route: 065
  115. CHOLECALCIFEROL [Concomitant]
     Active Substance: CHOLECALCIFEROL
     Route: 065
  116. METHOTREXATE (TRADE NAME UNKNOWN) [Suspect]
     Active Substance: METHOTREXATE
     Route: 048
  117. METHOTREXATE (TRADE NAME UNKNOWN) [Suspect]
     Active Substance: METHOTREXATE
     Dosage: 4 TIMES PER WEEK
     Route: 048
  118. METHOTREXATE (TRADE NAME UNKNOWN) [Suspect]
     Active Substance: METHOTREXATE
     Dosage: 4 TIMES PER WEEK
     Route: 058
  119. ETANERCEPT [Suspect]
     Active Substance: ETANERCEPT
     Route: 065
  120. ETANERCEPT [Suspect]
     Active Substance: ETANERCEPT
     Route: 065
  121. ENBREL [Suspect]
     Active Substance: ETANERCEPT
     Route: 058
  122. ENBREL [Suspect]
     Active Substance: ETANERCEPT
     Dosage: 2 TIMES/WK
     Route: 058
  123. APO IBUPROFEN [Suspect]
     Active Substance: IBUPROFEN
     Indication: PRODUCT USED FOR UNKNOWN INDICATION
     Route: 048
  124. APO?LEFLUNOMIDE [Suspect]
     Active Substance: LEFLUNOMIDE
     Route: 065
  125. CIMZIA [Suspect]
     Active Substance: CERTOLIZUMAB PEGOL
     Indication: PSORIATIC ARTHROPATHY
     Route: 058
  126. LEFLUNOMIDE. [Suspect]
     Active Substance: LEFLUNOMIDE
     Indication: PSORIATIC ARTHROPATHY
     Route: 048
  127. HUMIRA [Suspect]
     Active Substance: ADALIMUMAB
     Route: 058
  128. APREMILAST [Suspect]
     Active Substance: APREMILAST
     Indication: PSORIATIC ARTHROPATHY
     Route: 048
  129. CYCLOSPORIN A [Suspect]
     Active Substance: CYCLOSPORINE
     Indication: PSORIATIC ARTHROPATHY
     Route: 048
  130. MOTRIN [Suspect]
     Active Substance: IBUPROFEN
     Route: 065
  131. MOTRIN [Suspect]
     Active Substance: IBUPROFEN
     Route: 048
  132. ORENCIA [Suspect]
     Active Substance: ABATACEPT
     Indication: RHEUMATOID ARTHRITIS
     Route: 065
  133. SIMPONI [Suspect]
     Active Substance: GOLIMUMAB
     Route: 065
  134. TOCILIZUMAB. [Suspect]
     Active Substance: TOCILIZUMAB
     Route: 065
  135. OXYCODONE [Concomitant]
     Active Substance: OXYCODONE
     Route: 065
  136. OXYNEO [Concomitant]
     Active Substance: OXYCODONE
     Route: 065
  137. ULORIC [Concomitant]
     Active Substance: FEBUXOSTAT
     Route: 048
  138. ACIDE FOLIQUE [Concomitant]
     Active Substance: FOLIC ACID
     Route: 065
  139. NITRAZEPAM [Concomitant]
     Active Substance: NITRAZEPAM
     Route: 048
  140. XELJANZ [Concomitant]
     Active Substance: TOFACITINIB CITRATE
     Route: 065
  141. METHOTREXATE. [Concomitant]
     Active Substance: METHOTREXATE
     Route: 065
  142. METHOTREXATE (TRADE NAME UNKNOWN) [Suspect]
     Active Substance: METHOTREXATE
     Dosage: 4 TIMES PER WEEK
     Route: 065
  143. INFLIXIMAB HOSPIRA [Suspect]
     Active Substance: INFLIXIMAB
     Route: 042
  144. STELARA [Suspect]
     Active Substance: USTEKINUMAB
     Indication: PSORIATIC ARTHROPATHY
     Route: 065
  145. LEFLUNOMIDE. [Suspect]
     Active Substance: LEFLUNOMIDE
     Route: 048
  146. MOTRIN [Suspect]
     Active Substance: IBUPROFEN
     Route: 048
  147. MOTRIN [Suspect]
     Active Substance: IBUPROFEN
     Route: 048
  148. ORENCIA [Suspect]
     Active Substance: ABATACEPT
     Route: 065
  149. TOCILIZUMAB. [Suspect]
     Active Substance: TOCILIZUMAB
     Route: 065
  150. COSENTYX [Suspect]
     Active Substance: SECUKINUMAB
     Route: 058
  151. ARAVA [Suspect]
     Active Substance: LEFLUNOMIDE
     Indication: RHEUMATOID ARTHRITIS
     Route: 048
  152. OXYCODONE [Concomitant]
     Active Substance: OXYCODONE
     Route: 065
  153. OXYCODONE [Concomitant]
     Active Substance: OXYCODONE
     Route: 065
  154. MOGADON [Concomitant]
     Active Substance: NITRAZEPAM
     Route: 048
  155. ULORIC [Concomitant]
     Active Substance: FEBUXOSTAT
     Route: 065
  156. OXYCODONE HYDROCHLORIDE. [Concomitant]
     Active Substance: OXYCODONE HYDROCHLORIDE
     Route: 065
  157. VITAMIN D3 [Concomitant]
     Active Substance: CHOLECALCIFEROL
     Route: 048
  158. METHOTREXATE. [Concomitant]
     Active Substance: METHOTREXATE
     Indication: RHEUMATOID ARTHRITIS
     Route: 048
  159. METHOTREXATE. [Concomitant]
     Active Substance: METHOTREXATE
     Dosage: STRENGTH: 2.5 MG
     Route: 065

REACTIONS (56)
  - Overdose [Unknown]
  - Erythema [Unknown]
  - Red blood cell sedimentation rate increased [Unknown]
  - Diarrhoea [Unknown]
  - Fear of injection [Unknown]
  - Skin necrosis [Unknown]
  - Musculoskeletal stiffness [Unknown]
  - Drug ineffective [Unknown]
  - Therapy non-responder [Unknown]
  - Tenosynovitis [Unknown]
  - Drug eruption [Unknown]
  - Rheumatoid arthritis [Unknown]
  - Arthralgia [Unknown]
  - Joint swelling [Unknown]
  - Tongue disorder [Unknown]
  - Joint injury [Unknown]
  - Arthropathy [Unknown]
  - Pulmonary fibrosis [Unknown]
  - Tendonitis [Unknown]
  - Aspartate aminotransferase increased [Unknown]
  - Alanine aminotransferase abnormal [Unknown]
  - Hypercalcaemia [Unknown]
  - Panniculitis [Unknown]
  - Rash pruritic [Unknown]
  - Rash [Unknown]
  - Arthritis [Unknown]
  - Contraindicated product administered [Unknown]
  - Alanine aminotransferase increased [Unknown]
  - Abdominal discomfort [Unknown]
  - Drug intolerance [Unknown]
  - Nausea [Unknown]
  - General physical health deterioration [Unknown]
  - Blood parathyroid hormone decreased [Unknown]
  - Ulcer [Unknown]
  - Insomnia [Unknown]
  - Headache [Unknown]
  - Psoriatic arthropathy [Unknown]
  - Granuloma skin [Unknown]
  - Inflammation [Unknown]
  - Skin ulcer [Unknown]
  - Peripheral swelling [Unknown]
  - Basal cell carcinoma [Unknown]
  - Urticaria [Unknown]
  - Blood pressure systolic increased [Unknown]
  - Decreased appetite [Unknown]
  - Hypertension [Unknown]
  - Product use issue [Unknown]
  - Treatment failure [Unknown]
  - Loss of personal independence in daily activities [Unknown]
  - Enthesopathy [Unknown]
  - C-reactive protein increased [Unknown]
  - Synovitis [Unknown]
  - Rheumatoid nodule [Unknown]
  - Blood creatinine increased [Unknown]
  - Fatigue [Unknown]
  - Pain [Unknown]

NARRATIVE: CASE EVENT DATE: 20150729
